FAERS Safety Report 25544129 (Version 4)
Quarter: 2025Q3

REPORT INFORMATION
  Report Type: Report from Study
  Country: CA (occurrence: CA)
  Receive Date: 20250711
  Receipt Date: 20250828
  Transmission Date: 20251020
  Serious: Yes (Hospitalization)
  Sender: ABBVIE
  Company Number: CA-ABBVIE-6366330

PATIENT
  Age: 75 Year
  Sex: Female

DRUGS (4)
  1. SKYRIZI [Suspect]
     Active Substance: RISANKIZUMAB-RZAA
     Indication: Psoriasis
     Dosage: FORM STRENGTH: 150 MG
     Route: 058
  2. OZEMPIC [Concomitant]
     Active Substance: SEMAGLUTIDE
     Indication: Product used for unknown indication
  3. TRESIBA [Concomitant]
     Active Substance: INSULIN DEGLUDEC
     Indication: Product used for unknown indication
  4. KIRSTY [Concomitant]
     Active Substance: INSULIN ASPART-XJHZ
     Indication: Product used for unknown indication

REACTIONS (6)
  - Thrombosis [Recovering/Resolving]
  - Peripheral swelling [Unknown]
  - Fall [Unknown]
  - Cellulitis [Unknown]
  - Mobility decreased [Unknown]
  - Limb injury [Unknown]

NARRATIVE: CASE EVENT DATE: 20250601
